FAERS Safety Report 5188335-9 (Version None)
Quarter: 2006Q4

REPORT INFORMATION
  Report Type: 
  Country: None (occurrence: None)
  Receive Date: 20061221
  Receipt Date: 20061220
  Transmission Date: 20070319
  Serious: Yes (Other)
  Sender: FDA-Public Use
  Company Number: US-GLAXOSMITHKLINE-A0632292A

PATIENT
  Age: 64 Year
  Sex: Male

DRUGS (9)
  1. TARGET ORIGINAL 4MG [Suspect]
     Indication: SMOKING CESSATION THERAPY
     Dosage: 30GUM PER DAY
     Route: 002
  2. NICOTINE [Suspect]
     Indication: SMOKING CESSATION THERAPY
     Dosage: 30GUM PER DAY
     Route: 002
  3. NICORETTE [Suspect]
     Indication: SMOKING CESSATION THERAPY
     Dosage: 30GUM PER DAY
     Route: 002
  4. AMERICAN FARE NICOTINE GUM 4MG, ORIGINAL [Suspect]
     Indication: SMOKING CESSATION THERAPY
     Dosage: 30GUM PER DAY
     Route: 002
  5. NICOTINE GUM [Suspect]
     Indication: SMOKING CESSATION THERAPY
     Route: 002
  6. SPIRIVA [Concomitant]
  7. MOMETASONE FUROATE [Concomitant]
  8. FORADIL [Concomitant]
  9. ALBUTEROL [Concomitant]

REACTIONS (8)
  - ABDOMINAL PAIN UPPER [None]
  - DEPENDENCE [None]
  - DYSPEPSIA [None]
  - GASTRIC DISORDER [None]
  - GASTROOESOPHAGEAL REFLUX DISEASE [None]
  - INTENTIONAL DRUG MISUSE [None]
  - NAUSEA [None]
  - OVERDOSE [None]
